FAERS Safety Report 10195719 (Version 8)
Quarter: 2014Q4

REPORT INFORMATION
  Report Type: Report from Study
  Country: US (occurrence: US)
  Receive Date: 20140527
  Receipt Date: 20141219
  Transmission Date: 20150528
  Serious: Yes (Death, Hospitalization, Other)
  Sender: FDA-Public Use
  Company Number: US-ALEXION PHARMACEUTICALS INC.-A201401908

PATIENT

DRUGS (2)
  1. SOLIRIS [Suspect]
     Active Substance: ECULIZUMAB
     Indication: HAEMOLYTIC URAEMIC SYNDROME
     Dosage: 900 MG, QW
     Route: 042
     Dates: start: 20140512
  2. SOLIRIS [Suspect]
     Active Substance: ECULIZUMAB
     Dosage: 1200 MG, Q2W
     Route: 042
     Dates: start: 20140512

REACTIONS (13)
  - Unevaluable event [Unknown]
  - Blood urea increased [Not Recovered/Not Resolved]
  - Unevaluable event [Unknown]
  - Fluid overload [Recovering/Resolving]
  - General physical health deterioration [Not Recovered/Not Resolved]
  - Infection [Unknown]
  - Loss of consciousness [Not Recovered/Not Resolved]
  - Peripheral swelling [Not Recovered/Not Resolved]
  - Endotracheal intubation [Unknown]
  - Platelet count decreased [Recovering/Resolving]
  - Death [Fatal]
  - Blood lactate dehydrogenase increased [Recovering/Resolving]
  - Blood creatinine increased [Recovering/Resolving]

NARRATIVE: CASE EVENT DATE: 2014
